FAERS Safety Report 15598308 (Version 1)
Quarter: 2018Q4

REPORT INFORMATION
  Report Type: Spontaneous
  Country: US (occurrence: US)
  Receive Date: 20181108
  Receipt Date: 20181108
  Transmission Date: 20190205
  Serious: No
  Sender: FDA-Public Use
  Company Number: US-ALLERGAN-1822930US

PATIENT
  Age: 64 Year
  Sex: Male

DRUGS (4)
  1. RAPAFLO [Suspect]
     Active Substance: SILODOSIN
     Indication: PROSTATOMEGALY
     Dosage: 8 MG, QD WITH FOOD OR MILK
     Route: 048
     Dates: start: 201804
  2. METFORMIN [Concomitant]
     Active Substance: METFORMIN HYDROCHLORIDE
     Indication: DIABETES MELLITUS
     Dosage: UNK
     Route: 048
  3. ASPIRIN. [Concomitant]
     Active Substance: ASPIRIN
     Indication: PRODUCT USED FOR UNKNOWN INDICATION
     Dosage: 1 DF, QD
     Route: 048
  4. TRAMADOL. [Concomitant]
     Active Substance: TRAMADOL
     Indication: PAIN
     Dosage: UNK UNK, PRN
     Route: 048

REACTIONS (3)
  - Dizziness [Not Recovered/Not Resolved]
  - Nasal congestion [Not Recovered/Not Resolved]
  - Retrograde ejaculation [Not Recovered/Not Resolved]

NARRATIVE: CASE EVENT DATE: 201804
